FAERS Safety Report 14673440 (Version 2)
Quarter: 2018Q2

REPORT INFORMATION
  Report Type: Spontaneous
  Country: US (occurrence: US)
  Receive Date: 20180323
  Receipt Date: 20180409
  Transmission Date: 20180711
  Serious: No
  Sender: FDA-Public Use
  Company Number: US-BEH-2018088943

PATIENT
  Age: 79 Year
  Sex: Female

DRUGS (1)
  1. HAEGARDA [Suspect]
     Active Substance: HUMAN C1-ESTERASE INHIBITOR
     Indication: PRODUCT USED FOR UNKNOWN INDICATION
     Dosage: 4909 IU, UNK
     Route: 065
     Dates: start: 201801

REACTIONS (4)
  - Pruritus [Recovered/Resolved]
  - Constipation [Unknown]
  - Flatulence [Unknown]
  - Anxiety [Unknown]
